FAERS Safety Report 17751908 (Version 1)
Quarter: 2020Q2

REPORT INFORMATION
  Report Type: Spontaneous
  Country: CN (occurrence: CN)
  Receive Date: 20200506
  Receipt Date: 20200506
  Transmission Date: 20200714
  Serious: Yes (Other)
  Sender: FDA-Public Use
  Company Number: CN-ASTRAZENECA-2020SE58118

PATIENT
  Age: 16802 Day
  Sex: Female
  Weight: 70 kg

DRUGS (2)
  1. PULMICORT RESPULES [Suspect]
     Active Substance: BUDESONIDE
     Indication: PANCREATITIS ACUTE
     Route: 055
     Dates: start: 20200413, end: 20200413
  2. BRICANYL [Suspect]
     Active Substance: TERBUTALINE SULFATE
     Indication: PANCREATITIS ACUTE
     Route: 055
     Dates: start: 20200413, end: 20200413

REACTIONS (2)
  - Dyspnoea [Recovering/Resolving]
  - Heart rate increased [Recovering/Resolving]

NARRATIVE: CASE EVENT DATE: 20200413
